FAERS Safety Report 7237557-1 (Version None)
Quarter: 2011Q1

REPORT INFORMATION
  Report Type: 
  Country: None (occurrence: None)
  Receive Date: 20110121
  Receipt Date: 20110119
  Transmission Date: 20110831
  Serious: Yes (Death)
  Sender: FDA-Public Use
  Company Number: US-ABBOTT-10P-163-0673306-00

PATIENT
  Sex: Female
  Weight: 85.806 kg

DRUGS (30)
  1. CHOLESTYRIME [Concomitant]
     Indication: GASTROINTESTINAL DISORDER
     Dosage: 1 DOSE ORALLY
  2. PROCRIT [Concomitant]
     Indication: ANAEMIA
     Dosage: BLOOD COUNT DEPENDENT
  3. BETOPTIC [Concomitant]
     Indication: INTRAOCULAR PRESSURE INCREASED
     Dosage: 1 DROP IN LEFT EYE TWICE DAILY
  4. ALPRAZOLAM [Concomitant]
     Indication: PRODUCT USED FOR UNKNOWN INDICATION
  5. VIT C [Concomitant]
     Indication: PRODUCT USED FOR UNKNOWN INDICATION
  6. PLAVIX [Concomitant]
     Indication: CAROTID ARTERY DISEASE
  7. SINGULAIR [Concomitant]
     Indication: ASTHMA
  8. LOPRESSOR [Concomitant]
     Indication: BLOOD CHOLESTEROL INCREASED
  9. HUMALIN [Concomitant]
     Indication: DIABETES MELLITUS
     Dosage: DIABETES SLIDING SCALE
  10. XALATAN [Concomitant]
     Indication: GLAUCOMA
     Dosage: 1 DROP BOTH EYES AT BEDTIME
  11. PREDNISONE [Concomitant]
     Indication: ASTHMA
  12. FLUOCINONIDE [Concomitant]
     Indication: PRURITUS
     Route: 061
  13. NYSTATIN [Concomitant]
     Indication: PRODUCT USED FOR UNKNOWN INDICATION
     Route: 061
  14. LANTUS [Concomitant]
     Indication: DIABETES MELLITUS
  15. PREDNISOLONE [Concomitant]
     Indication: PRODUCT USED FOR UNKNOWN INDICATION
  16. FLUOCINONIDE [Concomitant]
     Route: 061
  17. ALBUTEROL [Concomitant]
     Indication: CARDIAC FAILURE CONGESTIVE
     Dosage: NEBULIZER 0.5-3 CC EVERY 4 HOURS AS REQUIRED
  18. FERROUS SULFATE [Concomitant]
     Indication: BLOOD COUNT
  19. TORSEMIDE [Concomitant]
     Indication: CARDIAC FAILURE CONGESTIVE
     Dosage: BY WEIGHT
  20. ADVAIR DISKUS 100/50 [Concomitant]
     Indication: CARDIAC FAILURE CONGESTIVE
  21. LIPITOR [Concomitant]
     Indication: BLOOD CHOLESTEROL
  22. ARICEPT [Concomitant]
     Indication: DEMENTIA
  23. O2 [Concomitant]
     Indication: PRODUCT USED FOR UNKNOWN INDICATION
     Dosage: NASAL CANNULA
  24. KEPPRA [Concomitant]
     Indication: CEREBROVASCULAR ACCIDENT
  25. ZEMPLAR [Suspect]
     Indication: NEPHROPATHY
  26. ALLEGRA [Concomitant]
     Indication: PRURITUS
  27. CARDIZEM [Concomitant]
     Indication: HYPERTENSION
  28. CITALOPRAM [Concomitant]
     Indication: DEPRESSION
  29. ADVAIR DISKUS 100/50 [Concomitant]
     Indication: ASTHMA
  30. NAMENDA [Concomitant]
     Indication: DEMENTIA

REACTIONS (1)
  - CARDIAC FAILURE CONGESTIVE [None]
